FAERS Safety Report 6463243-1 (Version None)
Quarter: 2009Q4

REPORT INFORMATION
  Report Type: 
  Country: None (occurrence: None)
  Receive Date: 20091130
  Receipt Date: 20090602
  Transmission Date: 20100525
  Serious: Yes (Other)
  Sender: FDA-Public Use
  Company Number: US-AMGEN-QUU349818

PATIENT
  Sex: Female

DRUGS (2)
  1. ENBREL [Suspect]
     Indication: RHEUMATOID ARTHRITIS
     Route: 058
     Dates: start: 20090409
  2. CYCLOPHOSPHAMIDE [Concomitant]
     Route: 048
     Dates: start: 20080501

REACTIONS (4)
  - DEPRESSION [None]
  - EMOTIONAL DISORDER [None]
  - IMPATIENCE [None]
  - MOOD SWINGS [None]
